FAERS Safety Report 7311877-4 (Version None)
Quarter: 2011Q1

REPORT INFORMATION
  Report Type: 
  Country: None (occurrence: None)
  Receive Date: 20110224
  Receipt Date: 20110215
  Transmission Date: 20110831
  Serious: Yes (Other)
  Sender: FDA-Public Use
  Company Number: CA-JNJFOC-20100403992

PATIENT
  Sex: Female

DRUGS (4)
  1. ASPIRIN [Concomitant]
  2. SIMPONI [Suspect]
     Indication: RHEUMATOID ARTHRITIS
     Route: 058
  3. TYLENOL [Concomitant]
  4. TYLENOL W/ CODEINE [Concomitant]

REACTIONS (4)
  - OROPHARYNGEAL PAIN [None]
  - ARTHRALGIA [None]
  - FATIGUE [None]
  - HEADACHE [None]
